FAERS Safety Report 15823127 (Version 1)
Quarter: 2019Q1

REPORT INFORMATION
  Report Type: Spontaneous
  Country: US (occurrence: US)
  Receive Date: 20190114
  Receipt Date: 20190114
  Transmission Date: 20190417
  Serious: Yes (Death)
  Sender: FDA-Public Use
  Company Number: US-BAYER-2019-006757

PATIENT
  Age: 94 Year
  Sex: Female

DRUGS (1)
  1. BAYER ASPIRIN EXTRA STRENGTH CAPLETS [Suspect]
     Active Substance: ASPIRIN
     Dosage: UNK
     Route: 048

REACTIONS (2)
  - Death [Fatal]
  - Therapeutic response unexpected [None]
